FAERS Safety Report 15037556 (Version 1)
Quarter: 2018Q2

REPORT INFORMATION
  Report Type: Spontaneous
  Country: ES (occurrence: ES)
  Receive Date: 20180620
  Receipt Date: 20180620
  Transmission Date: 20180711
  Serious: Yes (Hospitalization)
  Sender: FDA-Public Use
  Company Number: ES-TEVA-2018-ES-911502

PATIENT
  Age: 89 Year
  Sex: Female

DRUGS (7)
  1. OMEPRAZOL (2141A) [Concomitant]
     Active Substance: OMEPRAZOLE
     Route: 065
  2. PARACETAMOL (12A) [Concomitant]
     Active Substance: ACETAMINOPHEN
     Route: 065
  3. FABROVEN 150 MG/150 MG/100 MG CAPSULAS DURAS , 60 C?PSULAS [Concomitant]
     Route: 065
  4. LEVETIRACETAM (1167A) [Concomitant]
     Active Substance: LEVETIRACETAM
     Route: 048
  5. DUROGESIC MATRIX 50 MICROGRAMOS/H PARCHES TRANSDERMICOS , 5 PARCHES [Concomitant]
     Route: 062
  6. VALSART?N + HIDROCLOROTIAZIDA [Suspect]
     Active Substance: HYDROCHLOROTHIAZIDE\VALSARTAN
     Indication: HYPERTENSION
     Dosage: 1 DOSAGE FORMS DAILY;
     Route: 048
     Dates: start: 201712, end: 20180412
  7. NOLOTIL 575 MG CAPSULAS DURAS, 10 C?PSULAS [Concomitant]
     Active Substance: METAMIZOLE MAGNESIUM
     Route: 065

REACTIONS (1)
  - Hyponatraemia [Recovered/Resolved]

NARRATIVE: CASE EVENT DATE: 20180409
